FAERS Safety Report 12960859 (Version 1)
Quarter: 2016Q4

REPORT INFORMATION
  Report Type: Spontaneous
  Country: GB (occurrence: GB)
  Receive Date: 20161121
  Receipt Date: 20161121
  Transmission Date: 20170207
  Serious: Yes (Hospitalization)
  Sender: FDA-Public Use
  Company Number: GB-ABBVIE-16K-167-1781242-00

PATIENT
  Age: 73 Year

DRUGS (7)
  1. METFORMIN [Concomitant]
     Active Substance: METFORMIN HYDROCHLORIDE
     Indication: DIABETES MELLITUS
     Dates: start: 2011
  2. METHOTREXATE. [Concomitant]
     Active Substance: METHOTREXATE
     Indication: PRODUCT USED FOR UNKNOWN INDICATION
     Route: 058
  3. ATORVASTATIN [Concomitant]
     Active Substance: ATORVASTATIN
     Indication: DEEP VEIN THROMBOSIS
     Dates: start: 2011
  4. SERETIDE BRICANYL [Concomitant]
     Indication: ASTHMA
     Dates: start: 2000
  5. EUMOVATE [Concomitant]
     Active Substance: CLOBETASONE BUTYRATE
     Indication: PRODUCT USED FOR UNKNOWN INDICATION
  6. SIMVASTATIN. [Concomitant]
     Active Substance: SIMVASTATIN
     Indication: DEEP VEIN THROMBOSIS
     Dates: start: 2011
  7. HUMIRA [Suspect]
     Active Substance: ADALIMUMAB
     Indication: PRODUCT USED FOR UNKNOWN INDICATION
     Route: 058
     Dates: start: 201304

REACTIONS (10)
  - Gait disturbance [Unknown]
  - Blood creatine phosphokinase increased [Not Recovered/Not Resolved]
  - Oedema peripheral [Unknown]
  - Muscular weakness [Unknown]
  - Influenza [Unknown]
  - Viral infection [Unknown]
  - Myelitis [Unknown]
  - Mobility decreased [Unknown]
  - Polymyositis [Unknown]
  - Fatigue [Unknown]

NARRATIVE: CASE EVENT DATE: 2016
